FAERS Safety Report 7995505-0 (Version None)
Quarter: 2011Q4

REPORT INFORMATION
  Report Type: 
  Country: None (occurrence: None)
  Receive Date: 20111220
  Receipt Date: 20111217
  Transmission Date: 20120403
  Serious: No
  Sender: FDA-Public Use
  Company Number: US-PFIZER INC-2011306909

PATIENT
  Sex: Male

DRUGS (6)
  1. IBUPROFEN [Suspect]
     Indication: EYE DISCHARGE
     Dosage: 5 TABLETS OF 200MG
     Dates: start: 20111216, end: 20111217
  2. ADVIL COLD AND SINUS [Suspect]
     Indication: EYE DISCHARGE
     Dosage: 4 TABLETS OF 200MG
     Dates: start: 20111216, end: 20111217
  3. ADVIL COLD AND SINUS [Suspect]
     Indication: PYREXIA
  4. ADVIL COLD AND SINUS [Suspect]
     Indication: RHINORRHOEA
  5. IBUPROFEN [Suspect]
     Indication: RHINORRHOEA
  6. IBUPROFEN [Suspect]
     Indication: PYREXIA

REACTIONS (4)
  - INCORRECT DOSE ADMINISTERED [None]
  - DRUG INEFFECTIVE [None]
  - ABDOMINAL DISCOMFORT [None]
  - TREMOR [None]
